FAERS Safety Report 5787387-2 (Version None)
Quarter: 2008Q2

REPORT INFORMATION
  Report Type: 
  Country: None (occurrence: None)
  Receive Date: 20080625
  Receipt Date: 20080616
  Transmission Date: 20081010
  Serious: Yes (Other)
  Sender: FDA-Public Use
  Company Number: US-BAYER-200812495BCC

PATIENT
  Sex: Female
  Weight: 91 kg

DRUGS (1)
  1. BAYER EXTRA STRENGTH ASPIRIN [Suspect]
     Indication: ANALGESIA
     Route: 048

REACTIONS (2)
  - ABDOMINAL PAIN UPPER [None]
  - GASTRIC HAEMORRHAGE [None]
